FAERS Safety Report 6064209-6 (Version None)
Quarter: 2009Q1

REPORT INFORMATION
  Report Type: 
  Country: None (occurrence: None)
  Receive Date: 20090204
  Receipt Date: 20090126
  Transmission Date: 20090719
  Serious: Yes (Other)
  Sender: FDA-Public Use
  Company Number: CH-ASTRAZENECA-2002SE05462

PATIENT
  Age: 20473 Day
  Sex: Female
  Weight: 64.3 kg

DRUGS (6)
  1. FASLODEX [Suspect]
     Indication: BREAST CANCER METASTATIC
     Dosage: 250 MG MONTHLY
     Route: 030
     Dates: start: 20010308, end: 20020914
  2. FASLODEX [Suspect]
     Dosage: 125 MG MONTHLY
     Route: 030
     Dates: start: 20040201, end: 20060601
  3. FASLODEX [Suspect]
     Dosage: 125 MG MONTHLY
     Route: 030
     Dates: start: 20070101
  4. CALCIUM [Concomitant]
     Indication: OSTEOPOROSIS
     Route: 048
     Dates: start: 20020816
  5. MAGNESIUM SULFATE [Concomitant]
     Indication: MINERAL SUPPLEMENTATION
     Route: 048
     Dates: start: 20020816
  6. EMOFLUR [Concomitant]
     Indication: DYSPAREUNIA
     Dates: start: 20020503

REACTIONS (7)
  - ASTHENIA [None]
  - DRY MOUTH [None]
  - PHARYNGITIS [None]
  - STOMATITIS [None]
  - THROMBOPHLEBITIS SUPERFICIAL [None]
  - VAGINAL ULCERATION [None]
  - VULVOVAGINAL DRYNESS [None]
